FAERS Safety Report 12407946 (Version 1)
Quarter: 2016Q2

REPORT INFORMATION
  Report Type: Spontaneous
  Country: CH (occurrence: CH)
  Receive Date: 20160526
  Receipt Date: 20160526
  Transmission Date: 20160815
  Serious: Yes (Other)
  Sender: FDA-Public Use
  Company Number: CH-ROCHE-1764175

PATIENT
  Age: 26 Year
  Sex: Female
  Weight: 155 kg

DRUGS (11)
  1. SPIRICORT [Concomitant]
     Active Substance: PREDNISOLONE
     Indication: SYSTEMIC LUPUS ERYTHEMATOSUS
     Route: 048
     Dates: start: 1998
  2. URO-VAXOM [Concomitant]
     Route: 048
  3. MABTHERA [Suspect]
     Active Substance: RITUXIMAB
     Indication: SYSTEMIC LUPUS ERYTHEMATOSUS
     Route: 041
     Dates: start: 20160411, end: 20160411
  4. MARCOUMAR [Concomitant]
     Active Substance: PHENPROCOUMON
     Indication: ISCHAEMIC STROKE
     Route: 048
  5. CALCIMAGON-D3 [Concomitant]
     Active Substance: CALCIUM\CHOLECALCIFEROL
     Indication: OSTEOPOROSIS PROPHYLAXIS
     Route: 048
  6. SOLU-MEDROL [Concomitant]
     Active Substance: METHYLPREDNISOLONE SODIUM SUCCINATE
     Indication: ALLERGY PROPHYLAXIS
     Route: 048
     Dates: start: 20160409, end: 20160411
  7. ACIDUM FOLICUM [Concomitant]
     Active Substance: FOLIC ACID
     Indication: PROPHYLAXIS
     Route: 048
  8. PLAQUENIL [Concomitant]
     Active Substance: HYDROXYCHLOROQUINE SULFATE
     Indication: SYSTEMIC LUPUS ERYTHEMATOSUS
     Route: 048
     Dates: start: 2008
  9. MEPHADOLOR [Concomitant]
     Active Substance: MEFENAMIC ACID
     Indication: SYSTEMIC LUPUS ERYTHEMATOSUS
     Route: 048
  10. APROVEL [Concomitant]
     Active Substance: IRBESARTAN
     Route: 048
  11. METHOTREXATE [Concomitant]
     Active Substance: METHOTREXATE
     Indication: SYSTEMIC LUPUS ERYTHEMATOSUS
     Route: 048
     Dates: start: 2013

REACTIONS (3)
  - Anaphylactic reaction [Recovered/Resolved]
  - Skin test positive [Recovered/Resolved]
  - Type I hypersensitivity [Not Recovered/Not Resolved]

NARRATIVE: CASE EVENT DATE: 20160411
